FAERS Safety Report 16741540 (Version 1)
Quarter: 2019Q3

REPORT INFORMATION
  Report Type: Report from Study
  Country: US (occurrence: US)
  Receive Date: 20190826
  Receipt Date: 20190826
  Transmission Date: 20191005
  Serious: Yes (Hospitalization)
  Sender: FDA-Public Use
  Company Number: US-BRISTOL-MYERS SQUIBB COMPANY-BMS-2019-081940

PATIENT
  Age: 61 Year
  Sex: Male

DRUGS (2)
  1. PACLITAXEL ALBUMIN [Suspect]
     Active Substance: PACLITAXEL
     Indication: OROPHARYNGEAL CANCER
     Dosage: 100 MICROGRAM/SQ. METER, QWK
     Route: 042
     Dates: start: 20190729
  2. NIVOLUMAB [Suspect]
     Active Substance: NIVOLUMAB
     Indication: OROPHARYNGEAL CANCER
     Dosage: 360 MILLIGRAM, Q3WK
     Route: 042
     Dates: start: 20190729

REACTIONS (1)
  - Chest discomfort [Unknown]

NARRATIVE: CASE EVENT DATE: 20190816
